FAERS Safety Report 7292664-2 (Version None)
Quarter: 2011Q1

REPORT INFORMATION
  Report Type: 
  Country: None (occurrence: None)
  Receive Date: 20110203
  Receipt Date: 20110118
  Transmission Date: 20110831
  Serious: Yes (Death)
  Sender: FDA-Public Use
  Company Number: B069407A

PATIENT
  Age: 36 Year
  Sex: Male

DRUGS (9)
  1. SALICYLATE (FORMULATION UNKNOWN) (GENERIC) (SALICYLATE) [Suspect]
     Dosage: ORAL
     Route: 048
  2. TRAZODONE (FORMULATION UNKNOWN) (GENERIC) (TRAZODONE) [Suspect]
     Dosage: ORAL
     Route: 048
  3. FRUSEMIDE (FORMULATION UNKNOWN) (GENERIC) (FUROSEMIDE) [Suspect]
     Dosage: ORAL
     Route: 048
  4. WARFARIN SODIUM [Suspect]
     Dosage: ORAL
     Route: 048
  5. AMIODARONE (FORMULATION UNKNOWN) (GENERIC) (AMIODARONE) [Suspect]
     Dosage: ORAL
     Route: 048
  6. CARVEDILOL [Suspect]
     Dosage: ORAL
     Route: 048
  7. PREDNISONE (FORMULATION UNKNOWN) (GENERIC) (PREDNISONE) [Suspect]
     Dosage: ORAL
     Route: 048
  8. SPIRONOLACTONE (FORMULATION UNKNOWN) (GENERIC) (SPIRONOLACTONE) [Suspect]
     Dosage: ORAL
     Route: 048
  9. DIGOXIN [Suspect]
     Dosage: ORAL
     Route: 048

REACTIONS (2)
  - CARDIO-RESPIRATORY ARREST [None]
  - COMPLETED SUICIDE [None]
